FAERS Safety Report 15801407 (Version 1)
Quarter: 2018Q4

REPORT INFORMATION
  Report Type: Spontaneous
  Country: US (occurrence: None)
  Receive Date: 20181206
  Receipt Date: 20181206
  Transmission Date: 20190205
  Serious: Yes (Hospitalization)
  Sender: FDA-Public Use
  Company Number: KINGBIOTEMP1

PATIENT
  Age: 14 Year
  Sex: Female

DRUGS (4)
  1. ADVANCED ARNICA [Suspect]
     Active Substance: ARNICA MONTANA
     Indication: CONTUSION
     Route: 048
  2. ADVANCED ARNICA [Suspect]
     Active Substance: ARNICA MONTANA
     Indication: MUSCULOSKELETAL STIFFNESS
     Route: 048
  3. ADVANCED ARNICA [Suspect]
     Active Substance: ARNICA MONTANA
     Indication: INFLAMMATION
     Route: 048
  4. ADVANCED ARNICA [Suspect]
     Active Substance: ARNICA MONTANA
     Indication: PAIN
     Route: 048

REACTIONS (5)
  - Suspected transmission of an infectious agent via product [None]
  - Hydrocephalus [None]
  - Headache [None]
  - Product complaint [None]
  - Bacterial infection [None]

NARRATIVE: CASE EVENT DATE: 20180501
